FAERS Safety Report 21181537 (Version 3)
Quarter: 2022Q3

REPORT INFORMATION
  Report Type: Spontaneous
  Country: US (occurrence: US)
  Receive Date: 20220806
  Receipt Date: 20220927
  Transmission Date: 20221026
  Serious: No
  Sender: FDA-Public Use
  Company Number: US-SA-SAC20220802000920

PATIENT
  Age: 79 Year
  Sex: Male

DRUGS (3)
  1. PLAVIX [Suspect]
     Active Substance: CLOPIDOGREL BISULFATE
     Indication: Product used for unknown indication
     Dosage: UNK
     Dates: start: 20220330
  2. ORGOVYX [Suspect]
     Active Substance: RELUGOLIX
     Indication: Prostate cancer
     Dosage: 360 MG, 1X
     Route: 048
     Dates: start: 20220330, end: 20220330
  3. ORGOVYX [Suspect]
     Active Substance: RELUGOLIX
     Dosage: 120 MG, QD
     Route: 048
     Dates: start: 20220331

REACTIONS (5)
  - Weight decreased [Recovering/Resolving]
  - Gastrointestinal disorder [Recovered/Resolved]
  - Post procedural diarrhoea [Recovering/Resolving]
  - Diarrhoea [Recovering/Resolving]
  - Blood urine present [Unknown]
